FAERS Safety Report 7294654-2 (Version None)
Quarter: 2011Q1

REPORT INFORMATION
  Report Type: 
  Country: None (occurrence: None)
  Receive Date: 20110216
  Receipt Date: 20110204
  Transmission Date: 20110831
  Serious: Yes (Hospitalization)
  Sender: FDA-Public Use
  Company Number: US-RANBAXY-2011US-41661

PATIENT
  Age: 23 Year
  Sex: Male

DRUGS (1)
  1. IBUPROFEN [Suspect]
     Indication: PYREXIA
     Dosage: UNK, UNK
     Route: 065

REACTIONS (9)
  - WEIGHT DECREASED [None]
  - ANAL FISSURE [None]
  - GASTRIC ULCER [None]
  - C-REACTIVE PROTEIN INCREASED [None]
  - IRON DEFICIENCY ANAEMIA [None]
  - RED BLOOD CELL SEDIMENTATION RATE INCREASED [None]
  - RECTAL ULCER [None]
  - COLITIS [None]
  - NIGHT SWEATS [None]
